FAERS Safety Report 10248039 (Version 1)
Quarter: 2014Q2

REPORT INFORMATION
  Report Type: Spontaneous
  Country: ES (occurrence: ES)
  Receive Date: 20140619
  Receipt Date: 20140619
  Transmission Date: 20141212
  Serious: Yes (Hospitalization)
  Sender: FDA-Public Use
  Company Number: ES-ABBVIE-14P-144-1248009-00

PATIENT
  Age: 50 Year
  Sex: Male

DRUGS (1)
  1. HUMIRA [Suspect]
     Indication: PSORIASIS
     Route: 058
     Dates: start: 2010, end: 201310

REACTIONS (8)
  - Renal failure chronic [Recovered/Resolved]
  - Pulmonary tuberculosis [Recovering/Resolving]
  - Cough [Recovered/Resolved]
  - Weight decreased [Recovered/Resolved]
  - Night sweats [Recovered/Resolved]
  - Pleural effusion [Recovered/Resolved]
  - Malaise [Recovered/Resolved]
  - Pleural fibrosis [Unknown]
